FAERS Safety Report 4951183-6 (Version None)
Quarter: 2006Q1

REPORT INFORMATION
  Report Type: 
  Country: None (occurrence: None)
  Receive Date: 20060315
  Receipt Date: 20060302
  Transmission Date: 20060701
  Serious: Yes (Hospitalization)
  Sender: FDA-Public Use
  Company Number: 2006RR-01768

PATIENT
  Age: 80 Year
  Sex: Male

DRUGS (7)
  1. CLARITHROMYCIN [Suspect]
     Indication: HELICOBACTER INFECTION
     Dosage: 1 BID, ORAL
     Route: 048
     Dates: start: 20060208, end: 20060213
  2. AMOXICILLIN [Suspect]
     Indication: HELICOBACTER INFECTION
     Dosage: 1 BID, ORAL
     Route: 048
     Dates: start: 20060208, end: 20060213
  3. HELICLEAR(LANSOPRAZOLE) [Suspect]
     Indication: HELICOBACTER INFECTION
     Dosage: ORAL
     Route: 048
     Dates: start: 20060208, end: 20060213
  4. METFORMIN HYDROCHLORIDE [Concomitant]
  5. GLICLAZIDE [Concomitant]
  6. BENDROFLUAZIDE (BENDROFLUMETHIAZIDE) [Concomitant]
  7. PERINDOPRIL [Concomitant]

REACTIONS (1)
  - HYPOGLYCAEMIA [None]
